FAERS Safety Report 19924597 (Version 1)
Quarter: 2021Q4

REPORT INFORMATION
  Report Type: Spontaneous
  Country: US (occurrence: US)
  Receive Date: 20211006
  Receipt Date: 20211006
  Transmission Date: 20220303
  Serious: Yes (Other)
  Sender: FDA-Public Use
  Company Number: US-NOVARTISPH-NVSC2021US223763

PATIENT

DRUGS (2)
  1. BASILIXIMAB [Suspect]
     Active Substance: BASILIXIMAB
     Indication: Colitis ulcerative
     Dosage: 40 MG, OVER 10-15 MINUTES ON DAY 1
     Route: 042
  2. PREDNISONE [Concomitant]
     Active Substance: PREDNISONE
     Indication: Colitis ulcerative
     Dosage: 30 MG, QD (ON DAY 1, CONTINUED THROUGH WEEK 2)
     Route: 065

REACTIONS (2)
  - Anal abscess [Recovered/Resolved]
  - Product use in unapproved indication [Unknown]
